FAERS Safety Report 9688307 (Version 1)
Quarter: 2013Q4

REPORT INFORMATION
  Report Type: Spontaneous
  Country: US (occurrence: None)
  Receive Date: 20131113
  Receipt Date: 20131113
  Transmission Date: 20140711
  Serious: Yes (Hospitalization, Disabling, Other)
  Sender: FDA-Public Use
  Company Number: None

PATIENT
  Age: 83 Year
  Sex: Female

DRUGS (9)
  1. SMZ/EMP [Suspect]
     Indication: UPPER RESPIRATORY TRACT INFECTION
     Dosage: 800-160 ?20 PILLS?1 TABLETS TWO TIMES ADAY?MOUTH
     Route: 048
     Dates: start: 20131007, end: 20131010
  2. DILTIZER [Concomitant]
  3. SYNTHROID [Concomitant]
  4. WARFARIN [Concomitant]
  5. BENGIPRIL [Concomitant]
  6. CIPRODEX [Concomitant]
  7. PANTOPRAZOLE [Concomitant]
  8. CRESTOR [Concomitant]
  9. VISI7/2-OCURIITE [Concomitant]

REACTIONS (11)
  - Abdominal pain upper [None]
  - Nausea [None]
  - Decreased appetite [None]
  - Confusional state [None]
  - Diarrhoea [None]
  - Headache [None]
  - Chills [None]
  - Insomnia [None]
  - Chest discomfort [None]
  - Vomiting [None]
  - Heart rate increased [None]
